APPROVED DRUG PRODUCT: LORAZEPAM PRESERVATIVE FREE
Active Ingredient: LORAZEPAM
Strength: 4MG/ML
Dosage Form/Route: INJECTABLE;INJECTION
Application: A077074 | Product #002
Applicant: BEDFORD LABORATORIES
Approved: Jul 13, 2005 | RLD: No | RS: No | Type: DISCN